FAERS Safety Report 19434807 (Version 1)
Quarter: 2021Q2

REPORT INFORMATION
  Report Type: Spontaneous
  Country: US (occurrence: US)
  Receive Date: 20210617
  Receipt Date: 20210617
  Transmission Date: 20210717
  Serious: No
  Sender: FDA-Public Use
  Company Number: US-ROCHE-2640707

PATIENT
  Sex: Male

DRUGS (3)
  1. ACTEMRA [Suspect]
     Active Substance: TOCILIZUMAB
     Indication: ARTERITIS
     Dosage: INJECT 162MG SUBCUTANEOUSLY EVERY WEEK
     Route: 058
  2. ACTEMRA [Suspect]
     Active Substance: TOCILIZUMAB
     Indication: TAKAYASU^S ARTERITIS
  3. ACTEMRA [Suspect]
     Active Substance: TOCILIZUMAB
     Indication: CUTANEOUS VASCULITIS

REACTIONS (3)
  - Intentional product use issue [Unknown]
  - Off label use [Unknown]
  - Treatment noncompliance [Unknown]
